FAERS Safety Report 14753380 (Version 1)
Quarter: 2018Q2

REPORT INFORMATION
  Report Type: Spontaneous
  Country: FR (occurrence: FR)
  Receive Date: 20180412
  Receipt Date: 20180412
  Transmission Date: 20180711
  Serious: Yes (Hospitalization)
  Sender: FDA-Public Use
  Company Number: FR-MYLANLABS-2018M1022652

PATIENT
  Age: 71 Year
  Sex: Male
  Weight: 63.3 kg

DRUGS (8)
  1. MORPHINE [Concomitant]
     Active Substance: MORPHINE
     Indication: PRODUCT USED FOR UNKNOWN INDICATION
     Dosage: 3 MG, QD
     Route: 040
     Dates: start: 20180106
  2. ALVITYL                            /02362701/ [Concomitant]
     Indication: PRODUCT USED FOR UNKNOWN INDICATION
     Dosage: 1 DF, QD
     Route: 048
  3. CEFEPIME [Suspect]
     Active Substance: CEFEPIME HYDROCHLORIDE
     Indication: PRODUCT USED FOR UNKNOWN INDICATION
     Dosage: 2 G, QD
     Route: 040
     Dates: start: 20180110, end: 20180119
  4. VANCOMYCIN [Suspect]
     Active Substance: VANCOMYCIN
     Indication: PRODUCT USED FOR UNKNOWN INDICATION
     Dosage: D?BUT VANCOMYCINE LE 30/12 (2.5G) ARRET DE VANCOMYCINE 03/01 PUIS REPRISE LE 05/01 (1.5G), ARRET TRA
     Route: 041
     Dates: start: 20171230, end: 20180109
  5. CLONIDINE (CHLORHYDRATE DE) [Concomitant]
     Indication: PRODUCT USED FOR UNKNOWN INDICATION
     Dosage: 48 ML, QD
     Route: 041
  6. LEVOTHYROXINE SODIQUE [Concomitant]
     Active Substance: LEVOTHYROXINE SODIUM
     Indication: PRODUCT USED FOR UNKNOWN INDICATION
     Dosage: 50 G, QD
     Route: 048
     Dates: start: 20171228
  7. INSULINE                           /01223401/ [Concomitant]
     Active Substance: INSULIN NOS
     Indication: PRODUCT USED FOR UNKNOWN INDICATION
     Dosage: 43.2 ML, QD
     Route: 041
     Dates: start: 20171228
  8. FUROSEMIDE. [Concomitant]
     Active Substance: FUROSEMIDE
     Indication: PRODUCT USED FOR UNKNOWN INDICATION
     Dosage: + FUROS?MIDE (500 MG/50ML) 0 ? 48G/J
     Route: 040
     Dates: start: 20180105

REACTIONS (1)
  - Drug reaction with eosinophilia and systemic symptoms [Recovering/Resolving]

NARRATIVE: CASE EVENT DATE: 20180118
